FAERS Safety Report 9213967 (Version 1)
Quarter: 2013Q2

REPORT INFORMATION
  Report Type: Spontaneous
  Country: US (occurrence: None)
  Receive Date: 20130404
  Receipt Date: 20130404
  Transmission Date: 20140414
  Serious: Yes (Other)
  Sender: FDA-Public Use
  Company Number: None

PATIENT
  Age: 48 Year
  Sex: Female
  Weight: 68.04 kg

DRUGS (1)
  1. JUNEL [Suspect]
     Indication: POLYMENORRHOEA
     Dosage: 1 TABLET
     Route: 048
     Dates: start: 20120501, end: 20120930

REACTIONS (9)
  - Muscle spasms [None]
  - Back pain [None]
  - Loss of consciousness [None]
  - Headache [None]
  - Vomiting [None]
  - Dizziness [None]
  - Pulmonary embolism [None]
  - Cardiomegaly [None]
  - Renal pain [None]
